FAERS Safety Report 14441793 (Version 2)
Quarter: 2018Q1

REPORT INFORMATION
  Report Type: Spontaneous
  Country: US (occurrence: US)
  Receive Date: 20180125
  Receipt Date: 20180126
  Transmission Date: 20180509
  Serious: Yes (Other)
  Sender: FDA-Public Use
  Company Number: US-GLAXOSMITHKLINE-US2018012394

PATIENT
  Age: 65 Year
  Sex: Male

DRUGS (6)
  1. SPIRIVA [Concomitant]
     Active Substance: TIOTROPIUM BROMIDE MONOHYDRATE
  2. ALBUTEROL SULFATE. [Concomitant]
     Active Substance: ALBUTEROL SULFATE
  3. INCRUSE ELLIPTA [Suspect]
     Active Substance: UMECLIDINIUM BROMIDE
     Indication: CHRONIC OBSTRUCTIVE PULMONARY DISEASE
     Dosage: 1 PUFF(S), 1D
     Route: 055
     Dates: start: 20180107
  4. CRANBERRY EXTRACT [Concomitant]
     Active Substance: CRANBERRY JUICE
  5. GINGER ROOT [Concomitant]
     Active Substance: GINGER
  6. RANITIDINE. [Concomitant]
     Active Substance: RANITIDINE

REACTIONS (8)
  - Respiratory arrest [Unknown]
  - Choking [Recovered/Resolved]
  - Pharyngeal hypoaesthesia [Recovered/Resolved]
  - Lung disorder [Recovered/Resolved]
  - Hypoaesthesia [Recovered/Resolved]
  - Underdose [Unknown]
  - Dyspnoea [Recovered/Resolved]
  - Vomiting [Recovered/Resolved]

NARRATIVE: CASE EVENT DATE: 20180107
